FAERS Safety Report 9063953 (Version 1)
Quarter: 2013Q1

REPORT INFORMATION
  Report Type: Spontaneous
  Country: US (occurrence: US)
  Receive Date: 20130213
  Receipt Date: 20130213
  Transmission Date: 20140127
  Serious: Yes (Death)
  Sender: FDA-Public Use
  Company Number: US-ROCHE-1190065

PATIENT
  Sex: Female

DRUGS (3)
  1. AVASTIN [Suspect]
     Indication: RECTOSIGMOID CANCER
     Route: 065
  2. AVASTIN [Suspect]
     Indication: METASTASES TO LIVER
  3. 5-FU [Concomitant]
     Route: 065

REACTIONS (1)
  - Death [Fatal]
